FAERS Safety Report 4674394-6 (Version None)
Quarter: 2005Q2

REPORT INFORMATION
  Report Type: 
  Country: None (occurrence: None)
  Receive Date: 20050526
  Receipt Date: 20050223
  Transmission Date: 20051028
  Serious: Yes (Other)
  Sender: FDA-Public Use
  Company Number: PHBS2005BE02977

PATIENT
  Age: 70 Year
  Sex: Male

DRUGS (5)
  1. AMLOR [Concomitant]
     Route: 065
  2. APOCARD [Concomitant]
     Route: 065
  3. THALIDOMIDE [Concomitant]
     Route: 065
  4. DUPHALAC [Concomitant]
     Route: 065
  5. ZOMETA [Suspect]
     Indication: MULTIPLE MYELOMA
     Dosage: UNK, UNK
     Route: 042
     Dates: start: 20021201, end: 20041201

REACTIONS (2)
  - ASEPTIC NECROSIS BONE [None]
  - ORAL INFECTION [None]
